FAERS Safety Report 7764131-0 (Version None)
Quarter: 2011Q3

REPORT INFORMATION
  Report Type: 
  Country: None (occurrence: None)
  Receive Date: 20110921
  Receipt Date: 20110909
  Transmission Date: 20111222
  Serious: Yes (Other)
  Sender: FDA-Public Use
  Company Number: US-US-EMD SERONO, INC.-7082202

PATIENT
  Sex: Female

DRUGS (3)
  1. REBIF [Suspect]
     Indication: PRODUCT USED FOR UNKNOWN INDICATION
     Route: 058
     Dates: start: 20090713
  2. GABAPENTIN [Concomitant]
  3. MICARDIS HCT [Concomitant]
     Indication: HEART RATE INCREASED
     Dates: start: 20070101

REACTIONS (11)
  - OSTEOARTHRITIS [None]
  - URINARY RETENTION [None]
  - INFLUENZA LIKE ILLNESS [None]
  - POLLAKIURIA [None]
  - BONE PAIN [None]
  - MYOCARDIAL INFARCTION [None]
  - FRACTURE [None]
  - COORDINATION ABNORMAL [None]
  - HYPOVITAMINOSIS [None]
  - FULL BLOOD COUNT ABNORMAL [None]
  - INJECTION SITE REACTION [None]
